FAERS Safety Report 25716898 (Version 1)
Quarter: 2025Q3

REPORT INFORMATION
  Report Type: Spontaneous
  Country: US (occurrence: US)
  Receive Date: 20250822
  Receipt Date: 20250822
  Transmission Date: 20251020
  Serious: Yes (Other)
  Sender: RK PHARMA
  Company Number: US-RK PHARMA, INC-20250800128

PATIENT

DRUGS (3)
  1. MITOMYCIN [Suspect]
     Active Substance: MITOMYCIN
     Indication: Open angle glaucoma
     Route: 057
  2. MITOMYCIN [Suspect]
     Active Substance: MITOMYCIN
     Route: 065
  3. MITOMYCIN [Suspect]
     Active Substance: MITOMYCIN
     Route: 065

REACTIONS (4)
  - Endophthalmitis [Recovered/Resolved]
  - Scleral thinning [Recovered/Resolved]
  - Implant site erosion [Recovered/Resolved]
  - Drug ineffective [Recovered/Resolved]
